FAERS Safety Report 16709659 (Version 1)
Quarter: 2019Q3

REPORT INFORMATION
  Report Type: Spontaneous
  Country: CA (occurrence: CA)
  Receive Date: 20190816
  Receipt Date: 20190816
  Transmission Date: 20191004
  Serious: Yes (Hospitalization)
  Sender: FDA-Public Use
  Company Number: CA-HORIZON-RAV-0230-2019

PATIENT
  Age: 31 Year
  Sex: Female

DRUGS (3)
  1. CARNITINE [Concomitant]
     Active Substance: CARNITINE
  2. RAVICTI [Suspect]
     Active Substance: GLYCEROL PHENYLBUTYRATE
     Indication: CARBAMOYL PHOSPHATE SYNTHETASE DEFICIENCY
     Dosage: 4.0 ML TID
     Dates: start: 20180828
  3. CITRULLINE [Concomitant]
     Active Substance: CITRULLINE

REACTIONS (1)
  - Device related sepsis [Recovering/Resolving]
